FAERS Safety Report 10078434 (Version 1)
Quarter: 2014Q2

REPORT INFORMATION
  Report Type: Spontaneous
  Country: AU (occurrence: AU)
  Receive Date: 20140415
  Receipt Date: 20140415
  Transmission Date: 20141212
  Serious: Yes (Other)
  Sender: FDA-Public Use
  Company Number: AU-JNJFOC-20140305867

PATIENT
  Age: 60 Year
  Sex: Male

DRUGS (7)
  1. DOXORUBICIN [Suspect]
     Indication: B-CELL LYMPHOMA STAGE IV
     Route: 042
  2. BENDAMUSTINE HYDROCHLORIDE [Suspect]
     Indication: B-CELL LYMPHOMA STAGE IV
     Route: 065
  3. RITUXIMAB [Suspect]
     Indication: B-CELL LYMPHOMA STAGE IV
     Route: 065
  4. CYCLOPHOSPHAMIDE [Suspect]
     Indication: B-CELL LYMPHOMA STAGE IV
     Route: 065
  5. VINCRISTINE [Suspect]
     Indication: B-CELL LYMPHOMA STAGE IV
     Route: 065
  6. PREDNISONE [Suspect]
     Indication: B-CELL LYMPHOMA STAGE IV
     Route: 065
  7. IBRUTINIB [Concomitant]
     Route: 065

REACTIONS (2)
  - Pancytopenia [Unknown]
  - Disease progression [Unknown]
